FAERS Safety Report 6882594-X (Version None)
Quarter: 2010Q3

REPORT INFORMATION
  Report Type: 
  Country: None (occurrence: None)
  Receive Date: 20100701
  Receipt Date: 20091230
  Transmission Date: 20110219
  Serious: Yes (Hospitalization)
  Sender: FDA-Public Use
  Company Number: 09-ADE-SE-0040-ACT

PATIENT
  Age: 75 Year
  Sex: Male

DRUGS (1)
  1. H P ACTHAR [Suspect]
     Indication: NEPHROTIC SYNDROME
     Dosage: 40 IU IM Q3D
     Dates: start: 20090601, end: 20091201

REACTIONS (1)
  - CARDIAC FAILURE CONGESTIVE [None]
